FAERS Safety Report 5117069-1 (Version None)
Quarter: 2006Q3

REPORT INFORMATION
  Report Type: 
  Country: None (occurrence: None)
  Receive Date: 20060925
  Receipt Date: 20060911
  Transmission Date: 20061208
  Serious: Yes (Hospitalization)
  Sender: FDA-Public Use
  Company Number: 2006110591

PATIENT
  Age: 77 Year
  Sex: Female

DRUGS (7)
  1. FLUCONAZOLE [Suspect]
     Dosage: 50 MG (50 MG, 1 IN 1 D) ORAL
     Route: 048
     Dates: start: 20060704, end: 20060713
  2. METRONIDAZOLE [Suspect]
     Dosage: 800 MG (400 MG, 2 IN 1 D) ORAL
     Route: 048
     Dates: start: 20060707, end: 20060713
  3. PIPERACILLIN SODIUM AND TAZOBACTAM SODIUM [Suspect]
     Dosage: INTRAVENOUS
     Route: 042
     Dates: end: 20060713
  4. ACETYLCYSTEINE [Concomitant]
  5. AMLODIPINE [Concomitant]
  6. CODEINE [Concomitant]
  7. PARACETAMOL [Concomitant]

REACTIONS (3)
  - BLOOD ALKALINE PHOSPHATASE INCREASED [None]
  - GAMMA-GLUTAMYLTRANSFERASE INCREASED [None]
  - HEPATIC FUNCTION ABNORMAL [None]
